FAERS Safety Report 9379469 (Version 1)
Quarter: 2013Q3

REPORT INFORMATION
  Report Type: Spontaneous
  Country: US (occurrence: US)
  Receive Date: 20130702
  Receipt Date: 20130702
  Transmission Date: 20140515
  Serious: No
  Sender: FDA-Public Use
  Company Number: GB-ASTRAZENECA-2013SE48007

PATIENT
  Age: 61 Year
  Sex: Female

DRUGS (6)
  1. ZOMIG [Suspect]
     Indication: MIGRAINE
     Route: 045
     Dates: start: 201306
  2. ZOMIG [Suspect]
     Indication: MIGRAINE
     Dosage: 5 MG OF ZOMIG NASAL SPRAY, DAILY, IF NEEDED
     Route: 045
  3. PROZAC [Concomitant]
  4. LAMOTRIGINE [Concomitant]
  5. VITAMIN D [Concomitant]
  6. CALCIUM [Concomitant]

REACTIONS (1)
  - Sinus headache [Unknown]
